FAERS Safety Report 6940443-5 (Version None)
Quarter: 2010Q3

REPORT INFORMATION
  Report Type: 
  Country: None (occurrence: None)
  Receive Date: 20100825
  Receipt Date: 20100813
  Transmission Date: 20110219
  Serious: Yes (Other)
  Sender: FDA-Public Use
  Company Number: PHHY2010FR54935

PATIENT
  Age: 72 Year
  Sex: Male

DRUGS (2)
  1. STALEVO 100 [Suspect]
     Dosage: 200/200/50 MG
     Route: 048
     Dates: start: 20100623, end: 20100625
  2. STALEVO 100 [Suspect]
     Dosage: 200/100/25 MG

REACTIONS (3)
  - BRADYCARDIA [None]
  - HALLUCINATION [None]
  - PSYCHOMOTOR HYPERACTIVITY [None]
